FAERS Safety Report 6813124-6 (Version None)
Quarter: 2010Q3

REPORT INFORMATION
  Report Type: 
  Country: None (occurrence: None)
  Receive Date: 20100701
  Receipt Date: 20100623
  Transmission Date: 20110219
  Serious: Yes (Other)
  Sender: FDA-Public Use
  Company Number: US-PFIZER INC-2010079507

PATIENT
  Sex: Female
  Weight: 57.606 kg

DRUGS (2)
  1. ZOLOFT [Suspect]
     Indication: DEPRESSION
     Dosage: DAILY
  2. ZOMIG [Concomitant]
     Indication: MIGRAINE
     Dosage: UNK

REACTIONS (2)
  - MIGRAINE [None]
  - PANIC ATTACK [None]
